FAERS Safety Report 13283808 (Version 1)
Quarter: 2017Q1

REPORT INFORMATION
  Report Type: Spontaneous
  Country: US (occurrence: US)
  Receive Date: 20170301
  Receipt Date: 20170301
  Transmission Date: 20170428
  Serious: No
  Sender: FDA-Public Use
  Company Number: US-INSYS THERAPEUTICS, INC-INS201603-000124

PATIENT
  Age: 54 Year
  Sex: Female
  Weight: 78.74 kg

DRUGS (15)
  1. PROPRANOLOL [Concomitant]
     Active Substance: PROPRANOLOL HYDROCHLORIDE
     Route: 048
  2. ELAVIL [Concomitant]
     Active Substance: AMITRIPTYLINE HYDROCHLORIDE
     Route: 048
  3. SUBSYS [Suspect]
     Active Substance: FENTANYL
     Indication: POLAND^S SYNDROME
  4. GRALISE [Concomitant]
     Active Substance: GABAPENTIN
     Dates: start: 20140825
  5. MS CONTIN [Concomitant]
     Active Substance: MORPHINE SULFATE
  6. LIDOCAINE. [Concomitant]
     Active Substance: LIDOCAINE
     Dates: start: 20160111
  7. ELAVIL [Concomitant]
     Active Substance: AMITRIPTYLINE HYDROCHLORIDE
     Indication: INSOMNIA
  8. NUCYNTA ER [Concomitant]
     Active Substance: TAPENTADOL HYDROCHLORIDE
     Dates: start: 20151119
  9. SUBSYS [Suspect]
     Active Substance: FENTANYL
     Indication: PAIN
     Dates: start: 20160215, end: 20160315
  10. SUBSYS [Suspect]
     Active Substance: FENTANYL
     Indication: MUSCULOSKELETAL CHEST PAIN
  11. EMLA [Concomitant]
     Active Substance: LIDOCAINE\PRILOCAINE
     Dates: start: 20151119
  12. SYNTHROID [Concomitant]
     Active Substance: LEVOTHYROXINE SODIUM
  13. AMBIEN [Concomitant]
     Active Substance: ZOLPIDEM TARTRATE
     Indication: INSOMNIA
     Dates: start: 20140612
  14. OXYCODONE [Concomitant]
     Active Substance: OXYCODONE
  15. ACTIQ [Concomitant]
     Active Substance: FENTANYL CITRATE
     Indication: BREAKTHROUGH PAIN
     Route: 048
     Dates: start: 20140612

REACTIONS (1)
  - Oral mucosal blistering [Recovered/Resolved]

NARRATIVE: CASE EVENT DATE: 20160301
